FAERS Safety Report 4877259-X (Version None)
Quarter: 2006Q1

REPORT INFORMATION
  Report Type: 
  Country: None (occurrence: None)
  Receive Date: 20060111
  Receipt Date: 20051230
  Transmission Date: 20060701
  Serious: Yes (Other)
  Sender: FDA-Public Use
  Company Number: 2006SE00025

PATIENT
  Age: 16082 Day
  Sex: Male

DRUGS (1)
  1. CARBOCAINA [Suspect]
     Indication: LOCAL ANAESTHESIA
     Dosage: 8 ML ONCE (20 MG/ML)
     Route: 058
     Dates: start: 20051214, end: 20051214

REACTIONS (2)
  - DRUG EFFECT PROLONGED [None]
  - DYSAESTHESIA [None]
